FAERS Safety Report 8579629-5 (Version None)
Quarter: 2012Q3

REPORT INFORMATION
  Report Type: 
  Country: None (occurrence: None)
  Receive Date: 20120808
  Receipt Date: 20120802
  Transmission Date: 20120928
  Serious: Yes (Other)
  Sender: FDA-Public Use
  Company Number: CA-JNJFOC-20120801807

PATIENT
  Sex: Female

DRUGS (5)
  1. SIMPONI [Suspect]
     Route: 058
     Dates: start: 20120730
  2. SIMPONI [Suspect]
     Indication: RHEUMATOID ARTHRITIS
     Route: 058
     Dates: start: 20120730
  3. SIMPONI [Suspect]
     Route: 058
     Dates: start: 20111201
  4. SIMPONI [Suspect]
     Indication: PSORIATIC ARTHROPATHY
     Route: 058
     Dates: start: 20111201
  5. RIFAMPIN [Suspect]
     Indication: MYCOBACTERIUM TUBERCULOSIS COMPLEX TEST POSITIVE
     Dates: start: 20110901, end: 20120706

REACTIONS (2)
  - SOMNOLENCE [None]
  - LIVER DISORDER [None]
